FAERS Safety Report 5189151-4 (Version None)
Quarter: 2006Q4

REPORT INFORMATION
  Report Type: 
  Country: None (occurrence: None)
  Receive Date: 20061218
  Receipt Date: 20061205
  Transmission Date: 20070319
  Serious: Yes (Other)
  Sender: FDA-Public Use
  Company Number: 2006152259

PATIENT
  Age: 43 Year
  Sex: Female
  Weight: 60.782 kg

DRUGS (7)
  1. VFEND [Suspect]
     Indication: PNEUMONIA FUNGAL
     Dosage: 400 MG (200 MG, 2 IN 1 D), ORAL
     Route: 048
     Dates: start: 20061018, end: 20061101
  2. KLONOPIN [Concomitant]
  3. PREDNISONE TAB [Concomitant]
  4. TOPROL-XL [Concomitant]
  5. NEXIUM [Concomitant]
  6. ATENOLOL [Concomitant]
  7. DIAZEPAM [Concomitant]

REACTIONS (3)
  - CEREBRAL FUNGAL INFECTION [None]
  - PAPILLOEDEMA [None]
  - PHOTOSENSITIVITY REACTION [None]
